FAERS Safety Report 5481296-4 (Version None)
Quarter: 2007Q4

REPORT INFORMATION
  Report Type: 
  Country: None (occurrence: None)
  Receive Date: 20071005
  Receipt Date: 20071005
  Transmission Date: 20080405
  Serious: No
  Sender: FDA-Public Use
  Company Number: None

PATIENT
  Age: 27 Month
  Sex: Female
  Weight: 12.7007 kg

DRUGS (3)
  1. INFANT TRIAMINIC THIN STRIPS NOVARTIS [Suspect]
     Indication: COUGH
     Dosage: 2 STRIPS EVERY 4 HOURS PO
     Route: 048
     Dates: start: 20071004, end: 20071004
  2. INFANT TRIAMINIC THIN STRIPS NOVARTIS [Suspect]
     Indication: NASOPHARYNGITIS
     Dosage: 2 STRIPS EVERY 4 HOURS PO
     Route: 048
     Dates: start: 20071004, end: 20071004
  3. INFANT TRIAMINIC THIN STRIPS NOVARTIS [Suspect]
     Indication: SINUS CONGESTION
     Dosage: 2 STRIPS EVERY 4 HOURS PO
     Route: 048
     Dates: start: 20071004, end: 20071004

REACTIONS (1)
  - GLOSSODYNIA [None]
